FAERS Safety Report 7047455-4 (Version None)
Quarter: 2010Q4

REPORT INFORMATION
  Report Type: 
  Country: None (occurrence: None)
  Receive Date: 20101015
  Receipt Date: 20101008
  Transmission Date: 20110411
  Serious: Yes (Other)
  Sender: FDA-Public Use
  Company Number: GB-TEVA-251145USA

PATIENT
  Age: 60 Year
  Sex: Male

DRUGS (1)
  1. PIMOZIDE TABLETS [Suspect]
     Indication: PRODUCT USED FOR UNKNOWN INDICATION
     Route: 048

REACTIONS (2)
  - DRY MOUTH [None]
  - HEART RATE INCREASED [None]
